FAERS Safety Report 10222578 (Version 2)
Quarter: 2014Q2

REPORT INFORMATION
  Report Type: Spontaneous
  Country: US (occurrence: US)
  Receive Date: 20140606
  Receipt Date: 20140625
  Transmission Date: 20141212
  Serious: Yes (Life-Threatening, Other)
  Sender: FDA-Public Use
  Company Number: US-B.I. PHARMACEUTICALS,INC./RIDGEFIELD-2014-BI-25066BP

PATIENT
  Age: 67 Year
  Sex: Female
  Weight: 77 kg

DRUGS (6)
  1. PRADAXA [Suspect]
     Indication: PULMONARY EMBOLISM
     Dosage: 300 MG
     Route: 048
     Dates: end: 201405
  2. PRADAXA [Suspect]
     Indication: PULMONARY EMBOLISM
     Route: 065
     Dates: start: 20140512, end: 20140528
  3. PRADAXA [Suspect]
     Indication: ANTICOAGULANT THERAPY
  4. VENLAFAXINE [Concomitant]
     Indication: DEPRESSION
     Route: 065
     Dates: start: 20130730
  5. LIOTHYRONINE [Concomitant]
     Indication: HYPOTHYROIDISM
     Route: 065
     Dates: start: 20130507
  6. PROGEST [Concomitant]
     Indication: BLOOD OESTROGEN INCREASED
     Route: 065
     Dates: start: 20130507

REACTIONS (2)
  - Deep vein thrombosis [Not Recovered/Not Resolved]
  - Pulmonary embolism [Recovered/Resolved]
